FAERS Safety Report 17921903 (Version 2)
Quarter: 2020Q2

REPORT INFORMATION
  Report Type: Report from Study
  Country: MX (occurrence: MX)
  Receive Date: 20200622
  Receipt Date: 20200625
  Transmission Date: 20200714
  Serious: Yes (Death, Hospitalization)
  Sender: FDA-Public Use
  Company Number: NVSC2020MX174099

PATIENT
  Age: 55 Year
  Sex: Male
  Weight: 68 kg

DRUGS (1)
  1. TASIGNA [Suspect]
     Active Substance: NILOTINIB
     Indication: CHRONIC MYELOID LEUKAEMIA
     Dosage: 400 MG, Q12H
     Route: 048
     Dates: start: 20200220, end: 20200615

REACTIONS (8)
  - Cardio-respiratory arrest [Fatal]
  - Gastric haemorrhage [Fatal]
  - Abdominal pain upper [Fatal]
  - Hepatomegaly [Fatal]
  - Splenomegaly [Fatal]
  - Pulmonary oedema [Fatal]
  - Pain in extremity [Fatal]
  - Gastritis [Fatal]

NARRATIVE: CASE EVENT DATE: 20200616
